FAERS Safety Report 6819242-0 (Version None)
Quarter: 2010Q2

REPORT INFORMATION
  Report Type: 
  Country: None (occurrence: None)
  Receive Date: 20100630
  Receipt Date: 20100616
  Transmission Date: 20101027
  Serious: Yes (Hospitalization)
  Sender: FDA-Public Use
  Company Number: PERC20100081

PATIENT
  Age: 74 Year
  Sex: Male
  Weight: 93.6 kg

DRUGS (16)
  1. PERCOCET [Suspect]
     Indication: PAIN
     Dosage: 5/325 MG, Q4H, ORAL
     Route: 048
     Dates: start: 20090922, end: 20091002
  2. LEVODOPA-CARBIDOPA INTESTINAL GEL (LEVODOPA, CARBIDOPA) [Suspect]
     Indication: ON AND OFF PHENOMENON
     Dosage: 5/20 MG/ML, 5/20 MG/ML
     Dates: start: 20090914, end: 20090921
  3. LEVODOPA-CARBIDOPA INTESTINAL GEL (LEVODOPA, CARBIDOPA) [Suspect]
     Indication: PARKINSON'S DISEASE
     Dosage: 5/20 MG/ML, 5/20 MG/ML
     Dates: start: 20090914, end: 20090921
  4. LEVODOPA-CARBIDOPA INTESTINAL GEL (LEVODOPA, CARBIDOPA) [Suspect]
     Indication: ON AND OFF PHENOMENON
     Dosage: 5/20 MG/ML, 5/20 MG/ML
     Dates: start: 20090921
  5. LEVODOPA-CARBIDOPA INTESTINAL GEL (LEVODOPA, CARBIDOPA) [Suspect]
     Indication: PARKINSON'S DISEASE
     Dosage: 5/20 MG/ML, 5/20 MG/ML
     Dates: start: 20090921
  6. DILAUDID (HYDROMORPHONE HYDROCHLORIDE) (0.2 MILLIGRAM, INHALANT) [Suspect]
     Indication: PAIN
     Dosage: 0.2 MG, QD, INTRAVENOUS, 0.4 MG, PRN, INTRAVENOUS
     Route: 042
     Dates: start: 20090921, end: 20090922
  7. DILAUDID (HYDROMORPHONE HYDROCHLORIDE) (0.2 MILLIGRAM, INHALANT) [Suspect]
     Indication: PAIN
     Dosage: 0.2 MG, QD, INTRAVENOUS, 0.4 MG, PRN, INTRAVENOUS
     Route: 042
     Dates: start: 20090922, end: 20090922
  8. MS CONTIN (MORPHINE  SULFATE) (15 MILLIGRAM) [Suspect]
     Indication: PAIN
     Dosage: 15 MG, BID, ORAL
     Route: 048
     Dates: start: 20090923, end: 20090924
  9. CLONAZEPAM [Concomitant]
  10. HALDOL [Concomitant]
  11. HEPARIN [Concomitant]
  12. METHYLNALTREXONE (METHYLNALTREXONE) [Concomitant]
  13. SERTRALINE HCL [Concomitant]
  14. SIMVASTATIN [Concomitant]
  15. LORAZEPAM [Concomitant]
  16. DEPHENHYDRAMINE (DIPHENHYDRAMINE) (DIPHENHYDRAMINE) [Concomitant]

REACTIONS (16)
  - ABDOMINAL PAIN [None]
  - AORTIC CALCIFICATION [None]
  - AORTIC ELONGATION [None]
  - ATELECTASIS [None]
  - BLOOD POTASSIUM DECREASED [None]
  - BLOOD SODIUM INCREASED [None]
  - CONFUSIONAL STATE [None]
  - CONSTIPATION [None]
  - DEHYDRATION [None]
  - DELIRIUM [None]
  - ILEUS PARALYTIC [None]
  - MYOCLONUS [None]
  - PNEUMONIA [None]
  - TOXIC ENCEPHALOPATHY [None]
  - VOMITING [None]
  - WHITE BLOOD CELL COUNT INCREASED [None]
